FAERS Safety Report 5254807-1 (Version None)
Quarter: 2007Q1

REPORT INFORMATION
  Report Type: 
  Country: None (occurrence: None)
  Receive Date: 20070305
  Receipt Date: 20070221
  Transmission Date: 20070707
  Serious: Yes (Disabling)
  Sender: FDA-Public Use
  Company Number: JP-ELI_LILLY_AND_COMPANY-JP200611001478

PATIENT
  Age: 38 Year
  Sex: Male
  Weight: 75 kg

DRUGS (13)
  1. OLANZAPINE [Suspect]
     Indication: SCHIZOPHRENIA
     Dosage: 10 MG, DAILY (1/D)
     Route: 048
     Dates: start: 20060330, end: 20060416
  2. OLANZAPINE [Suspect]
     Dosage: 20 MG, DAILY (1/D)
     Route: 048
     Dates: start: 20060417
  3. SEROQUEL [Concomitant]
     Indication: SCHIZOPHRENIA
     Dosage: 650 MG, DAILY (1/D)
     Route: 065
     Dates: start: 20060303, end: 20060402
  4. SEROQUEL [Concomitant]
     Dosage: 200 MG, DAILY (1/D)
     Route: 048
     Dates: start: 20020807, end: 20060223
  5. SEROQUEL [Concomitant]
     Dosage: 300 MG, DAILY (1/D)
     Route: 048
     Dates: start: 20060224, end: 20060301
  6. SEROQUEL [Concomitant]
     Dosage: 400 MG, DAILY (1/D)
     Route: 048
     Dates: start: 20060302, end: 20060302
  7. SEROQUEL [Concomitant]
     Dosage: 400 MG, DAILY (1/D)
     Route: 048
     Dates: start: 20060403, end: 20060412
  8. SEROQUEL [Concomitant]
     Dosage: 300 MG, DAILY (1/D)
     Route: 048
     Dates: start: 20060413, end: 20060419
  9. SEROQUEL [Concomitant]
     Dosage: 200 MG, DAILY (1/D)
     Route: 048
     Dates: start: 20060420, end: 20060426
  10. CONTOMIN [Concomitant]
     Indication: SCHIZOPHRENIA
     Dosage: 100 MG, DAILY (1/D)
     Route: 048
     Dates: start: 20060302, end: 20060305
  11. CONTOMIN [Concomitant]
     Dosage: 200 MG, DAILY (1/D)
     Route: 048
     Dates: start: 20060306, end: 20060322
  12. CONTOMIN [Concomitant]
     Dosage: 150 MG, DAILY (1/D)
     Route: 048
     Dates: start: 20060323, end: 20060426
  13. ROHYPNOL [Concomitant]
     Dosage: 2 MG, DAILY (1/D)
     Route: 048
     Dates: start: 20060306

REACTIONS (1)
  - PAROXYSMAL PERCEPTUAL ALTERATION [None]
